FAERS Safety Report 16307162 (Version 1)
Quarter: 2019Q2

REPORT INFORMATION
  Report Type: Spontaneous
  Country: US (occurrence: US)
  Receive Date: 20190514
  Receipt Date: 20190514
  Transmission Date: 20190711
  Serious: Yes (Hospitalization)
  Sender: FDA-Public Use
  Company Number: US-B.I. PHARMACEUTICALS,INC./RIDGEFIELD-2019-BI-021576

PATIENT

DRUGS (1)
  1. PRADAXA [Suspect]
     Active Substance: DABIGATRAN ETEXILATE MESYLATE
     Indication: ATRIAL FIBRILLATION
     Route: 065
     Dates: start: 20160405

REACTIONS (6)
  - Epistaxis [Recovered/Resolved]
  - Rectal haemorrhage [Recovered/Resolved]
  - Epistaxis [Unknown]
  - Gastrointestinal haemorrhage [Unknown]
  - Gastrointestinal haemorrhage [Recovered/Resolved]
  - Rectal haemorrhage [Unknown]

NARRATIVE: CASE EVENT DATE: 20160525
